FAERS Safety Report 12550891 (Version 2)
Quarter: 2016Q3

REPORT INFORMATION
  Report Type: Spontaneous
  Country: RU (occurrence: RU)
  Receive Date: 20160712
  Receipt Date: 20160718
  Transmission Date: 20161109
  Serious: Yes (Other)
  Sender: FDA-Public Use
  Company Number: PHHY2016RU094184

PATIENT
  Age: 11 Year
  Sex: Male

DRUGS (2)
  1. ILARIS [Suspect]
     Active Substance: CANAKINUMAB
     Indication: MUCKLE-WELLS SYNDROME
     Dosage: UNK UNK, QMO
     Route: 065
     Dates: start: 201511
  2. COLCHICIN [Concomitant]
     Active Substance: COLCHICINE
     Indication: MUCKLE-WELLS SYNDROME
     Route: 065

REACTIONS (2)
  - Ear pain [Unknown]
  - Otitis media acute [Recovered/Resolved]

NARRATIVE: CASE EVENT DATE: 20160704
